FAERS Safety Report 16148101 (Version 1)
Quarter: 2019Q2

REPORT INFORMATION
  Report Type: Spontaneous
  Country: US (occurrence: US)
  Receive Date: 20190402
  Receipt Date: 20190402
  Transmission Date: 20190711
  Serious: No
  Sender: FDA-Public Use
  Company Number: US-MYLANLABS-2019M1022924

PATIENT

DRUGS (4)
  1. WIXELA INHUB [Suspect]
     Active Substance: FLUTICASONE PROPIONATE\SALMETEROL XINAFOATE
     Indication: CHRONIC OBSTRUCTIVE PULMONARY DISEASE
     Dosage: 250/50 MCG, BID
     Route: 048
     Dates: start: 20190306
  2. LATANOPROST. [Concomitant]
     Active Substance: LATANOPROST
  3. ATENOLOL. [Concomitant]
     Active Substance: ATENOLOL
  4. RHOPRESSA [Concomitant]
     Active Substance: NETARSUDIL MESYLATE

REACTIONS (2)
  - Product dose omission [Not Recovered/Not Resolved]
  - Device issue [Not Recovered/Not Resolved]

NARRATIVE: CASE EVENT DATE: 20190307
